FAERS Safety Report 6239287-1 (Version None)
Quarter: 2009Q2

REPORT INFORMATION
  Report Type: 
  Country: None (occurrence: None)
  Receive Date: 20090618
  Receipt Date: 20090618
  Transmission Date: 20091009
  Serious: No
  Sender: FDA-Public Use
  Company Number: None

PATIENT
  Age: 47 Year
  Sex: Female
  Weight: 65.7716 kg

DRUGS (1)
  1. ZICAM GEL SWAB MATRIXX INITIATIVES [Suspect]
     Indication: NASOPHARYNGITIS
     Dosage: ONE GEL SWAB SINGLE USE NASAL
     Route: 045
     Dates: start: 20030301, end: 20030301

REACTIONS (2)
  - ANOSMIA [None]
  - DYSGEUSIA [None]
